FAERS Safety Report 20741468 (Version 1)
Quarter: 2022Q2

REPORT INFORMATION
  Report Type: Spontaneous
  Country: US (occurrence: US)
  Receive Date: 20220422
  Receipt Date: 20220422
  Transmission Date: 20220721
  Serious: No
  Sender: FDA-Public Use
  Company Number: US-PFIZER INC-2020077088

PATIENT
  Age: 93 Year
  Sex: Male
  Weight: 64.86 kg

DRUGS (7)
  1. SUTENT [Suspect]
     Active Substance: SUNITINIB MALATE
     Indication: Malignant neoplasm of renal pelvis
     Dosage: 37.5 MG, CYCLIC (TAKE 1 TAB DAILY FOR 2 WKS ON, 1 WK OFF)
  2. SUTENT [Suspect]
     Active Substance: SUNITINIB MALATE
     Indication: Neoplasm malignant
     Dosage: 37.5 MG, CYCLIC [2 WEEKS ON AND 2 WEEKS OFF]
  3. SUTENT [Suspect]
     Active Substance: SUNITINIB MALATE
     Dosage: 37.5 MG, CYCLIC [TAKE 1 TAB DAILY FOR 1 WEEK ON, 1 WEEK OFF]
  4. SUTENT [Suspect]
     Active Substance: SUNITINIB MALATE
     Dosage: 100 MG, CYCLIC [TAKE 100MG DAILY, FOR 7 DAYS FOLLOW BY 7 DAYS OFF]
  5. SUTENT [Suspect]
     Active Substance: SUNITINIB MALATE
     Dosage: 33.75 MG, CYCLIC [TAKES IT 3 WEEKS ON AND 2 WEEKS OFF]
  6. SUTENT [Suspect]
     Active Substance: SUNITINIB MALATE
     Dosage: 37.5 MG [TAKE THREE WEEKS ON AND TWO WEEKS OFF]
  7. SUTENT [Suspect]
     Active Substance: SUNITINIB MALATE
     Dosage: 37.5 MG, CYCLIC (2 WEEKS ON AND 2 WEEKS OFF)

REACTIONS (3)
  - Diarrhoea [Not Recovered/Not Resolved]
  - Weight decreased [Unknown]
  - Off label use [Unknown]
